FAERS Safety Report 8450562-2 (Version None)
Quarter: 2012Q2

REPORT INFORMATION
  Report Type: 
  Country: None (occurrence: None)
  Receive Date: 20120601
  Receipt Date: 20111223
  Transmission Date: 20120825
  Serious: Yes (Hospitalization, Congenital Anomaly, Other)
  Sender: FDA-Public Use
  Company Number: 2012032227

PATIENT
  Sex: Female

DRUGS (1)
  1. RHOPHYLAC [Suspect]

REACTIONS (9)
  - ABDOMINAL TENDERNESS [None]
  - ABDOMINAL DISTENSION [None]
  - MATERNAL DRUGS AFFECTING FOETUS [None]
  - GASTROINTESTINAL HYPOMOTILITY [None]
  - MECONIUM ILEUS [None]
  - REGURGITATION [None]
  - BREECH PRESENTATION [None]
  - ANTERIOR DISPLACED ANUS [None]
  - ABDOMINAL PAIN [None]
